FAERS Safety Report 24625882 (Version 2)
Quarter: 2024Q4

REPORT INFORMATION
  Report Type: Spontaneous
  Country: JP (occurrence: JP)
  Receive Date: 20241115
  Receipt Date: 20241227
  Transmission Date: 20250115
  Serious: Yes (Other)
  Sender: Visiox
  Company Number: JP-SANTEN-2024-AER-00492

PATIENT
  Age: 67 Year
  Sex: Female

DRUGS (3)
  1. OMIDENEPAG ISOPROPYL [Suspect]
     Active Substance: OMIDENEPAG ISOPROPYL
     Indication: Normal tension glaucoma
     Dosage: 1 DROP ONCE A DAY, LEFT EYE, NIGHT
     Route: 047
     Dates: start: 20230713, end: 20240930
  2. METHYLCOBALAMIN [Concomitant]
     Active Substance: METHYLCOBALAMIN
     Indication: Product used for unknown indication
     Dosage: 3 TABLETS, 3 DOSES
     Route: 048
     Dates: start: 201702
  3. FLUOROMETHOLONE [Concomitant]
     Active Substance: FLUOROMETHOLONE
     Indication: Product used for unknown indication
     Dosage: 3 TIMES LEFT EYE
     Route: 047
     Dates: start: 20240229, end: 20240314

REACTIONS (1)
  - Iridocyclitis [Recovered/Resolved]

NARRATIVE: CASE EVENT DATE: 20240919
